FAERS Safety Report 18540098 (Version 1)
Quarter: 2020Q4

REPORT INFORMATION
  Report Type: Spontaneous
  Country: GB (occurrence: GB)
  Receive Date: 20201124
  Receipt Date: 20201124
  Transmission Date: 20210114
  Serious: Yes (Other)
  Sender: FDA-Public Use
  Company Number: GB-PFIZER INC-2020460137

PATIENT
  Age: 40 Year
  Sex: Male
  Weight: 65 kg

DRUGS (4)
  1. CODEINE [Concomitant]
     Active Substance: CODEINE
     Dosage: 30 MG, THREE OR FOUR TIMES DAILY
     Route: 048
     Dates: start: 20200817, end: 20200915
  2. SERTRALINE HCL [Suspect]
     Active Substance: SERTRALINE HYDROCHLORIDE
     Indication: DEPRESSION
     Dosage: 50 MG, 1X/DAY
     Route: 048
     Dates: start: 20201013, end: 20201022
  3. DIAZEPAM. [Concomitant]
     Active Substance: DIAZEPAM
     Dosage: 6 MG, 1X/DAY
     Route: 048
     Dates: start: 20200825, end: 20200923
  4. CITALOPRAM [Concomitant]
     Active Substance: CITALOPRAM HYDROBROMIDE
     Dosage: 20 MG, 1X/DAY
     Route: 048
     Dates: start: 20201022

REACTIONS (4)
  - Gastritis haemorrhagic [Recovered/Resolved]
  - Dyspepsia [Unknown]
  - Muscle tightness [Unknown]
  - Erectile dysfunction [Unknown]

NARRATIVE: CASE EVENT DATE: 20201013
